FAERS Safety Report 8972297 (Version 1)
Quarter: 2012Q4

REPORT INFORMATION
  Report Type: 
  Country: DE (occurrence: DE)
  Receive Date: 20121218
  Receipt Date: 20121218
  Transmission Date: 20130627
  Serious: Yes (Hospitalization, Other)
  Sender: FDA-Public Use
  Company Number: GXKR2012DE003832

PATIENT
  Age: 75 Year
  Sex: Male
  Weight: 75 kg

DRUGS (5)
  1. ZOLPIDEM [Suspect]
     Indication: INSOMNIA
     Dosage: 10 mg, QD
     Route: 048
     Dates: start: 20120621, end: 20120630
  2. SCOPODERM TTS [Suspect]
     Dosage: UNK UKN, Q72H
     Route: 062
     Dates: start: 20120629, end: 20120630
  3. TORASEMID [Concomitant]
     Dosage: 10 mg, QD
  4. TORASEMID [Concomitant]
     Dosage: 10 mg, BID
     Route: 048
     Dates: start: 20120627
  5. PARACETAMOL [Concomitant]
     Dosage: 1000 mg, QID
     Route: 048
     Dates: start: 20120618, end: 20120622

REACTIONS (5)
  - Gamma-glutamyltransferase increased [Unknown]
  - Fall [Recovered/Resolved]
  - Confusional state [Recovered/Resolved]
  - Disorientation [Recovered/Resolved]
  - Blood alkaline phosphatase increased [Unknown]
